FAERS Safety Report 12010398 (Version 2)
Quarter: 2016Q1

REPORT INFORMATION
  Report Type: Spontaneous
  Country: US (occurrence: None)
  Receive Date: 20160204
  Receipt Date: 20160224
  Transmission Date: 20160526
  Serious: Yes (Death, Other)
  Sender: FDA-Public Use
  Company Number: BE-ALSI-201600019

PATIENT
  Age: 23 Year
  Sex: Male

DRUGS (1)
  1. OXYGENE MEDICAL GAZEUX AIR LIQUIDE, 100% GAZ POUR INHALATION OXYGEN [Suspect]
     Active Substance: OXYGEN
     Indication: ACUTE RESPIRATORY FAILURE
     Route: 055
     Dates: start: 20160122

REACTIONS (5)
  - Product quality issue [None]
  - Device occlusion [None]
  - Cyanosis [None]
  - Device breakage [None]
  - Incorrect dose administered by device [None]

NARRATIVE: CASE EVENT DATE: 20160122
